FAERS Safety Report 5821490-3 (Version None)
Quarter: 2008Q3

REPORT INFORMATION
  Report Type: 
  Country: None (occurrence: None)
  Receive Date: 20080721
  Receipt Date: 20080714
  Transmission Date: 20090109
  Serious: Yes (Hospitalization)
  Sender: FDA-Public Use
  Company Number: APP200800646

PATIENT
  Age: 57 Year
  Sex: Male
  Weight: 101.6057 kg

DRUGS (5)
  1. CARBOPLATIN [Suspect]
     Indication: NEOPLASM MALIGNANT
     Dosage: 593 MG, AUC OF 6.0, INTRAVENOUS
     Route: 042
     Dates: start: 20080404, end: 20080404
  2. CARBOPLATIN [Suspect]
     Indication: NEOPLASM MALIGNANT
     Dosage: 593 MG, AUC OF 6.0, INTRAVENOUS
     Route: 042
     Dates: start: 20080425, end: 20080425
  3. TAXOL [Suspect]
     Indication: NEOPLASM MALIGNANT
     Dosage: 330 MG, 200 MG/M2, INTRAVENOUS
     Route: 042
     Dates: start: 20080404, end: 20080404
  4. TAXOL [Suspect]
     Indication: NEOPLASM MALIGNANT
     Dosage: 330 MG, 200 MG/M2, INTRAVENOUS
     Route: 042
     Dates: start: 20080425, end: 20080425
  5. ETOPOSIDE [Suspect]
     Indication: NEOPLASM MALIGNANT
     Dosage: ORAL
     Route: 048
     Dates: start: 20080404, end: 20080404

REACTIONS (1)
  - DYSPNOEA [None]
